FAERS Safety Report 25389714 (Version 1)
Quarter: 2025Q2

REPORT INFORMATION
  Report Type: Spontaneous
  Country: US (occurrence: US)
  Receive Date: 20250603
  Receipt Date: 20250603
  Transmission Date: 20250717
  Serious: No
  Sender: TEVA
  Company Number: US-TEVA-VS-3335383

PATIENT
  Age: 81 Year
  Sex: Male

DRUGS (3)
  1. TOLTERODINE [Suspect]
     Active Substance: TOLTERODINE
     Indication: Product used for unknown indication
     Route: 065
  2. INGREZZA [Concomitant]
     Active Substance: VALBENAZINE DITOSYLATE
     Indication: Dyskinesia
     Route: 048
  3. INGREZZA [Concomitant]
     Active Substance: VALBENAZINE DITOSYLATE
     Indication: Dyskinesia
     Route: 065

REACTIONS (1)
  - Dyskinesia [Recovered/Resolved]
